FAERS Safety Report 7700588-9 (Version None)
Quarter: 2011Q3

REPORT INFORMATION
  Report Type: 
  Country: None (occurrence: None)
  Receive Date: 20110817
  Receipt Date: 20110602
  Transmission Date: 20111222
  Serious: Yes (Death)
  Sender: FDA-Public Use
  Company Number: GGEL20110600637

PATIENT
  Sex: Male

DRUGS (4)
  1. TOPIRAMATE [Suspect]
     Indication: EPILEPSY
     Dosage: ORAL USE
     Route: 048
  2. VALPROATE SODIUM [Suspect]
     Indication: EPILEPSY
  3. LAMOTRIGINE [Suspect]
     Indication: EPILEPSY
  4. PHENYTOIN [Suspect]
     Indication: EPILEPSY

REACTIONS (2)
  - SEPSIS [None]
  - RENAL FAILURE [None]
